FAERS Safety Report 5222250-7 (Version None)
Quarter: 2007Q1

REPORT INFORMATION
  Report Type: 
  Country: None (occurrence: None)
  Receive Date: 20070129
  Receipt Date: 20061122
  Transmission Date: 20070707
  Serious: No
  Sender: FDA-Public Use
  Company Number: US-GLAXOSMITHKLINE-A0628526A

PATIENT
  Age: 48 Year
  Sex: Female

DRUGS (3)
  1. FLULAVAL [Suspect]
     Indication: PROPHYLAXIS
     Dosage: .5ML SINGLE DOSE
     Route: 065
     Dates: start: 20061103, end: 20061103
  2. WELLBUTRIN [Suspect]
     Indication: DRUG USE FOR UNKNOWN INDICATION
     Route: 048
     Dates: start: 20060101
  3. CONCURRENT MEDICATIONS [Concomitant]

REACTIONS (2)
  - URINARY TRACT INFECTION [None]
  - URTICARIA [None]
